FAERS Safety Report 17423868 (Version 1)
Quarter: 2020Q1

REPORT INFORMATION
  Report Type: Spontaneous
  Country: HR (occurrence: HR)
  Receive Date: 20200217
  Receipt Date: 20200217
  Transmission Date: 20200409
  Serious: Yes (Life-Threatening, Other)
  Sender: FDA-Public Use
  Company Number: HR-US-PROVELL PHARMACEUTICALS LLC-E2B_90074800

PATIENT
  Age: 38 Year
  Sex: Female
  Weight: 83 kg

DRUGS (2)
  1. EUTHYROX [Suspect]
     Active Substance: LEVOTHYROXINE SODIUM
     Indication: AUTOIMMUNE THYROIDITIS
     Route: 048
     Dates: start: 20200103, end: 20200117
  2. EUTHYROX [Suspect]
     Active Substance: LEVOTHYROXINE SODIUM
     Route: 048
     Dates: start: 20200103, end: 20200117

REACTIONS (8)
  - Dizziness [Unknown]
  - Muscle fatigue [Unknown]
  - Paralysis [Unknown]
  - Fatigue [Recovering/Resolving]
  - Extrasystoles [Unknown]
  - Somnolence [Recovering/Resolving]
  - Tachycardia [Recovering/Resolving]
  - Retching [Recovered/Resolved]

NARRATIVE: CASE EVENT DATE: 202001
